FAERS Safety Report 13093635 (Version 1)
Quarter: 2017Q1

REPORT INFORMATION
  Report Type: Spontaneous
  Country: US (occurrence: US)
  Receive Date: 20170106
  Receipt Date: 20170106
  Transmission Date: 20170428
  Serious: No
  Sender: FDA-Public Use
  Company Number: US-TARO-2015TAR01117

PATIENT
  Sex: Female

DRUGS (2)
  1. TRIAMCINOLONE ACETONIDE CREAM USP 0.1% [Suspect]
     Active Substance: TRIAMCINOLONE ACETONIDE
     Indication: SKIN LESION
     Dosage: UNK
     Dates: start: 20150520, end: 20150604
  2. CLOBETASOL PROPIONATE USP 0.005% [Suspect]
     Active Substance: CLOBETASOL PROPIONATE
     Indication: SKIN LESION
     Dosage: UNK
     Dates: start: 20150520, end: 20150604

REACTIONS (2)
  - Skin lesion [Recovered/Resolved]
  - Condition aggravated [None]

NARRATIVE: CASE EVENT DATE: 20150601
